FAERS Safety Report 15974456 (Version 1)
Quarter: 2019Q1

REPORT INFORMATION
  Report Type: Report from Study
  Country: NL (occurrence: NL)
  Receive Date: 20190218
  Receipt Date: 20190218
  Transmission Date: 20190418
  Serious: Yes (Hospitalization)
  Sender: FDA-Public Use
  Company Number: NL-ROCHE-2207392

PATIENT
  Age: 54 Year

DRUGS (2)
  1. ATEZOLIZUMAB. [Suspect]
     Active Substance: ATEZOLIZUMAB
     Indication: INVASIVE LOBULAR BREAST CARCINOMA
     Dosage: FREQUENCY: STARTING AFTER TWO ADMINISTRATIONS OF CARBOPLATIN.?ON 15/OCT/2018, THE PATIENT RECEIVED M
     Route: 042
     Dates: start: 20180924
  2. CARBOPLATIN. [Suspect]
     Active Substance: CARBOPLATIN
     Indication: INVASIVE LOBULAR BREAST CARCINOMA
     Dosage: DOSE: 1.5 AUC?ON 22/OCT/2018, THE PATIENT RECEIVED MOST RESCENT DOSE OF CARBOPLATIN.
     Route: 042
     Dates: start: 20180820

REACTIONS (1)
  - Ileus [Recovered/Resolved]

NARRATIVE: CASE EVENT DATE: 20181024
